FAERS Safety Report 10674912 (Version 6)
Quarter: 2015Q3

REPORT INFORMATION
  Report Type: Spontaneous
  Country: US (occurrence: US)
  Receive Date: 20141224
  Receipt Date: 20150716
  Transmission Date: 20151125
  Serious: Yes (Life-Threatening, Congenital Anomaly, Other)
  Sender: FDA-Public Use
  Company Number: US-ELI_LILLY_AND_COMPANY-US201412008637

PATIENT
  Age: 0 Day
  Sex: Female

DRUGS (4)
  1. ACIDUM FOLICUM [Concomitant]
     Active Substance: FOLIC ACID
  2. PROZAC [Suspect]
     Active Substance: FLUOXETINE HYDROCHLORIDE
     Indication: PRODUCT USED FOR UNKNOWN INDICATION
     Dosage: 1 DF, UNKNOWN
     Route: 064
  3. INSULIN [Concomitant]
     Active Substance: INSULIN NOS
  4. PAXIL [Concomitant]
     Active Substance: PAROXETINE HYDROCHLORIDE

REACTIONS (27)
  - Vesicoureteric reflux [Unknown]
  - Head circumference abnormal [Unknown]
  - Bladder dilatation [Unknown]
  - Pulmonary valve stenosis [Unknown]
  - Atelectasis [Unknown]
  - Dysmorphism [Unknown]
  - Mitral valve incompetence [Unknown]
  - Lung infiltration [Unknown]
  - Premature delivery [Unknown]
  - Sotos^ syndrome [Unknown]
  - Coarctation of the aorta [Unknown]
  - Double ureter [Unknown]
  - Macrocephaly [Unknown]
  - Ventricular septal defect [Recovered/Resolved]
  - Atrial septal defect [Unknown]
  - Cardiac failure congestive [Unknown]
  - Congenital tricuspid valve stenosis [Unknown]
  - Hydrocephalus [Unknown]
  - Neurodevelopmental disorder [Unknown]
  - Hypoplastic right heart syndrome [Unknown]
  - Large for dates baby [Unknown]
  - Pulmonary oedema [Unknown]
  - Pulmonary vascular disorder [Unknown]
  - Dysphagia [Unknown]
  - Pulmonary hypertension [Unknown]
  - Transposition of the great vessels [Unknown]
  - Foetal exposure during pregnancy [Unknown]

NARRATIVE: CASE EVENT DATE: 20101107
